FAERS Safety Report 20254666 (Version 1)
Quarter: 2021Q4

REPORT INFORMATION
  Report Type: Report from Study
  Country: FR (occurrence: FR)
  Receive Date: 20211230
  Receipt Date: 20211230
  Transmission Date: 20220303
  Serious: Yes (Other)
  Sender: FDA-Public Use
  Company Number: FR-TEVA-2021-FR-1994608

PATIENT
  Age: 14 Year
  Sex: Female

DRUGS (12)
  1. METHOTREXATE [Suspect]
     Active Substance: METHOTREXATE
     Indication: Acute myeloid leukaemia
     Dosage: AS INDUCTION THERAPY
     Route: 037
  2. CYTARABINE [Suspect]
     Active Substance: CYTARABINE
     Indication: Acute myeloid leukaemia
     Dosage: AS INDUCTION THERAPY; TOTAL DOSE: 1400MG/M2
     Route: 065
  3. CYTARABINE [Suspect]
     Active Substance: CYTARABINE
     Dosage: AS FIRST CONSOLIDATION THERAPY; TOTAL DOSE: 18 G/M2
     Route: 065
  4. MITOXANTRONE [Suspect]
     Active Substance: MITOXANTRONE HYDROCHLORIDE
     Indication: Acute myeloid leukaemia
     Dosage: AS INDUCTION THERAPY; TOTAL DOSE 60 MG/M2
     Route: 065
  5. HYDROCORTISONE [Suspect]
     Active Substance: HYDROCORTISONE
     Indication: Acute myeloid leukaemia
     Dosage: AS INDUCTION THERAPY
     Route: 065
  6. AMSACRINE [Suspect]
     Active Substance: AMSACRINE
     Indication: Acute myeloid leukaemia
     Dosage: AS FIRST CONSOLIDATION THERAPY; TOTAL DOSE 300 MG/M2
     Route: 065
  7. PONATINIB [Suspect]
     Active Substance: PONATINIB
     Dosage: 45 MILLIGRAM DAILY; STARTING FROM DAY 15
     Route: 065
  8. DEXAMETHASONE [Suspect]
     Active Substance: DEXAMETHASONE
     Indication: Acute myeloid leukaemia
     Route: 037
  9. GEMTUZUMAB OZOGAMICIN [Concomitant]
     Active Substance: GEMTUZUMAB OZOGAMICIN
     Indication: Acute myeloid leukaemia
     Dosage: ADMINISTERED OVER 2 HOURS ON DAYS 1, 4, AND 7
     Route: 065
  10. FLUDARABINE PHOSPHATE [Concomitant]
     Active Substance: FLUDARABINE PHOSPHATE
     Indication: Acute myeloid leukaemia
     Dosage: ADMINISTERED OVER 30 MIN ON DAYS 1 TO 5
     Route: 065
  11. CLOFARABINE [Concomitant]
     Active Substance: CLOFARABINE
     Indication: Acute myeloid leukaemia
     Dosage: 40 MG/M2 OVER 2 HOURS
     Route: 065
  12. DAUNORUBICIN [Concomitant]
     Active Substance: DAUNORUBICIN
     Indication: Acute myeloid leukaemia
     Dosage: 60 MG/M2 OVER 1 HOUR
     Route: 065

REACTIONS (2)
  - Drug resistance [Unknown]
  - Off label use [Unknown]
